FAERS Safety Report 16355297 (Version 4)
Quarter: 2019Q2

REPORT INFORMATION
  Report Type: Spontaneous
  Country: US (occurrence: US)
  Receive Date: 20190525
  Receipt Date: 20190604
  Transmission Date: 20190711
  Serious: No
  Sender: FDA-Public Use
  Company Number: US-JNJFOC-20190508458

PATIENT
  Sex: Female
  Weight: 72.58 kg

DRUGS (1)
  1. TYLENOL EXTRA STRENGTH [Suspect]
     Active Substance: ACETAMINOPHEN
     Indication: PAIN
     Route: 048

REACTIONS (4)
  - Dizziness [Recovering/Resolving]
  - Headache [Recovering/Resolving]
  - Product contamination physical [Unknown]
  - Poor quality product administered [Unknown]
